FAERS Safety Report 24044895 (Version 1)
Quarter: 2024Q3

REPORT INFORMATION
  Report Type: Spontaneous
  Country: IT (occurrence: IT)
  Receive Date: 20240703
  Receipt Date: 20240703
  Transmission Date: 20241016
  Serious: Yes (Other)
  Sender: ACCORD
  Company Number: None

PATIENT
  Age: 69 Year
  Sex: Male

DRUGS (5)
  1. FLUOROURACIL [Suspect]
     Active Substance: FLUOROURACIL
     Indication: Rectal cancer metastatic
     Dosage: 11 CYCLE - THERAPY EVERY 14 DAYS - BOLUS INFUSION
     Dates: start: 20240118, end: 20240118
  2. OXALIPLATIN [Suspect]
     Active Substance: OXALIPLATIN
     Indication: Rectal cancer metastatic
     Dosage: 11 CYCLE - THERAPY EVERY 14 DAYS
     Dates: start: 20240118, end: 20240118
  3. BEVACIZUMAB [Suspect]
     Active Substance: BEVACIZUMAB
     Indication: Rectal cancer metastatic
     Dosage: 11 CYCLE - THERAPY EVERY 14 DAYS
     Dates: start: 20240118, end: 20240118
  4. LEVOLEUCOVORIN [Concomitant]
     Active Substance: LEVOLEUCOVORIN
  5. FLUOROURACIL [Suspect]
     Active Substance: FLUOROURACIL
     Indication: Rectal cancer metastatic
     Dosage: 11 CYCLE - THERAPY EVERY 14 DAYS - CONTINUOUS INFUSION FOR 46 HOURS
     Dates: start: 20240118, end: 20240120

REACTIONS (1)
  - Neuropathy peripheral [Recovering/Resolving]

NARRATIVE: CASE EVENT DATE: 20240201
